FAERS Safety Report 8943514 (Version 1)
Quarter: 2012Q4

REPORT INFORMATION
  Report Type: 
  Country: US (occurrence: US)
  Receive Date: 20121204
  Receipt Date: 20121204
  Transmission Date: 20130627
  Serious: No
  Sender: FDA-Public Use
  Company Number: US-PFIZER INC-2012299441

PATIENT
  Age: 78 Year
  Sex: Male
  Weight: 70.3 kg

DRUGS (3)
  1. VIAGRA [Suspect]
     Indication: ERECTILE DYSFUNCTION
     Dosage: 12.5 mg (12.5mg tablet by splitting 25mg tablet into half ), as needed
     Route: 048
     Dates: start: 2007
  2. FLOMAX [Concomitant]
     Indication: ENLARGED PROSTATE
     Dosage: 0.4 mg, UNK
  3. DOXYCYCLINE [Concomitant]
     Dosage: 100 mg, 1x/day

REACTIONS (1)
  - Drug ineffective [Unknown]
